FAERS Safety Report 5884723-3 (Version None)
Quarter: 2008Q3

REPORT INFORMATION
  Report Type: 
  Country: None (occurrence: None)
  Receive Date: 20080912
  Receipt Date: 20080903
  Transmission Date: 20090109
  Serious: Yes (Other)
  Sender: FDA-Public Use
  Company Number: 08H-163-0314851-00

PATIENT
  Age: 24 Year
  Sex: Female

DRUGS (9)
  1. SUFENTANIL CITRATE INJECTION (SUFENTANIL CITRATE) (SUFENTANIL CITRATE) [Suspect]
     Indication: PAIN
     Dosage: SEE IMAGE
     Route: 042
  2. HYDROMORPHONE HCL [Suspect]
     Indication: PAIN
     Dosage: IV VIA PCA
     Route: 042
  3. LORAZEPAM [Suspect]
     Indication: ANXIETY
     Dosage: 0.5 MG/H, INFUSION
  4. METHADONE HCL [Suspect]
     Indication: PAIN
  5. FENTANYL-100 [Suspect]
     Indication: PAIN
     Dosage: AS NEEDED OROMUCOSAL USE,
  6. FENTANYL-100 [Suspect]
     Indication: PAIN
     Dosage: 250 MCG/H, EVERY 72 HRS, TRANSDERMAL, 150 MCG/H, EVERY 72 HRS, TRANSDERMAL, 75 MCG/H, EVERY 72 HRS,
     Route: 062
  7. CLONAZEPAM [Suspect]
     Indication: DRUG USE FOR UNKNOWN INDICATION
     Dosage: 0.5 MG, 2 IN 1 D, ORAL
     Route: 048
  8. DRONABINOL [Suspect]
     Indication: DRUG USE FOR UNKNOWN INDICATION
     Dosage: 12.5 MG, 2 IN 1 D, ORAL
     Route: 048
  9. DEXAMETHASONE TAB [Concomitant]

REACTIONS (11)
  - ANOREXIA [None]
  - COGNITIVE DISORDER [None]
  - DELIRIUM [None]
  - DISORIENTATION [None]
  - DISTURBANCE IN ATTENTION [None]
  - DRUG TOXICITY [None]
  - INSOMNIA [None]
  - MALAISE [None]
  - SOMNOLENCE [None]
  - STRESS [None]
  - TREATMENT FAILURE [None]
